FAERS Safety Report 7377414-3 (Version None)
Quarter: 2011Q1

REPORT INFORMATION
  Report Type: 
  Country: None (occurrence: None)
  Receive Date: 20110328
  Receipt Date: 20101004
  Transmission Date: 20110831
  Serious: Yes (Other)
  Sender: FDA-Public Use
  Company Number: US-BAYER-201010667NA

PATIENT
  Sex: Female
  Weight: 71.364 kg

DRUGS (5)
  1. IBUPROFEN [Concomitant]
     Indication: BACK PAIN
  2. YAZ [Suspect]
     Indication: CONTRACEPTION
     Route: 048
     Dates: start: 20071105, end: 20080102
  3. FLUOXETINE [Concomitant]
     Indication: DEPRESSION
     Dates: start: 20051101
  4. FLUOXETINE [Concomitant]
     Indication: ANXIETY
  5. PROZAC [Concomitant]

REACTIONS (5)
  - HAEMATOMA [None]
  - PAIN IN EXTREMITY [None]
  - DEEP VEIN THROMBOSIS [None]
  - THROMBOPHLEBITIS SUPERFICIAL [None]
  - ARTHRALGIA [None]
